FAERS Safety Report 7615658-3 (Version None)
Quarter: 2011Q3

REPORT INFORMATION
  Report Type: 
  Country: None (occurrence: None)
  Receive Date: 20110711
  Receipt Date: 20110630
  Transmission Date: 20111222
  Serious: Yes (Other)
  Sender: FDA-Public Use
  Company Number: 2011002040

PATIENT
  Age: 79 Year
  Sex: Male

DRUGS (3)
  1. TARCEVA [Suspect]
     Indication: NON-SMALL CELL LUNG CANCER
     Dosage: 100 MG, UID/QD, ORAL; 150 MG, UID/QD, ORAL
     Route: 048
     Dates: start: 20110401, end: 20110428
  2. FLOMAX [Concomitant]
  3. MULTI VITAMINS (MULTIPLE VITAMINS) [Concomitant]

REACTIONS (9)
  - DYSPNOEA [None]
  - DECREASED APPETITE [None]
  - HAEMOGLOBIN DECREASED [None]
  - LYMPHOPENIA [None]
  - RASH [None]
  - BLOOD SODIUM DECREASED [None]
  - DIARRHOEA [None]
  - FATIGUE [None]
  - DIZZINESS [None]
